FAERS Safety Report 23912482 (Version 1)
Quarter: 2024Q2

REPORT INFORMATION
  Report Type: Spontaneous
  Country: US (occurrence: US)
  Receive Date: 20240528
  Receipt Date: 20240528
  Transmission Date: 20240716
  Serious: No
  Sender: FDA-Public Use
  Company Number: US-BIOGEN-2024BI01248330

PATIENT
  Sex: Female

DRUGS (1)
  1. SKYCLARYS [Suspect]
     Active Substance: OMAVELOXOLONE
     Indication: Friedreich^s ataxia
     Route: 050
     Dates: start: 20230711, end: 202404

REACTIONS (5)
  - Dizziness [Not Recovered/Not Resolved]
  - Feeling abnormal [Unknown]
  - Balance disorder [Unknown]
  - Hepatic enzyme increased [Unknown]
  - Mood altered [Unknown]

NARRATIVE: CASE EVENT DATE: 20230101
